FAERS Safety Report 6684534-5 (Version None)
Quarter: 2010Q2

REPORT INFORMATION
  Report Type: 
  Country: None (occurrence: None)
  Receive Date: 20100416
  Receipt Date: 20100409
  Transmission Date: 20101027
  Serious: Yes (Hospitalization, Other)
  Sender: FDA-Public Use
  Company Number: US-PFIZER INC-2008025430

PATIENT
  Sex: Female

DRUGS (23)
  1. DILANTIN-125 [Suspect]
     Indication: CONVULSION
     Dosage: 300 MG, 2X/DAY
     Dates: start: 20061223, end: 20070118
  2. DILANTIN-125 [Suspect]
     Dosage: 200 MG, 2X/DAY
     Route: 048
     Dates: start: 20061222, end: 20070302
  3. DILANTIN [Suspect]
     Indication: CONVULSION
     Dosage: 300 MG, 2X/DAY
     Dates: start: 20070118
  4. DILANTIN [Suspect]
     Dosage: 200 MG, 2X/DAY
     Route: 042
     Dates: start: 20061222, end: 20070204
  5. DILANTIN [Suspect]
     Dosage: 100 MG, 2X/DAY
     Route: 048
     Dates: start: 20070110, end: 20070131
  6. PHENYTOIN [Suspect]
     Indication: CONVULSION
  7. HYDRALAZINE [Concomitant]
  8. LASIX [Concomitant]
  9. NITROGLYCERIN [Concomitant]
     Route: 061
  10. PREVACID [Concomitant]
  11. REGLAN [Concomitant]
  12. LISINOPRIL [Concomitant]
  13. MULTI-VITAMINS [Concomitant]
  14. TYLENOL-500 [Concomitant]
  15. BENADRYL [Concomitant]
  16. CLONIDINE [Concomitant]
  17. LABETALOL HCL [Concomitant]
  18. ZOFRAN [Concomitant]
  19. LOPRESSOR [Concomitant]
  20. IPRATROPIUM BROMIDE AND ALBUTEROL SULFATE [Concomitant]
     Dosage: 2 PUFF INHALATION
     Dates: start: 20070119
  21. MICONAZOLE NITRATE [Concomitant]
     Dosage: UNK
     Route: 061
     Dates: start: 20070119
  22. CEFEPIME [Concomitant]
     Dosage: 1 G, EVERY 12 HOURS
     Dates: start: 20070122
  23. FERROUS SULFATE [Concomitant]
     Dosage: 325 MG, 2X/DAY
     Route: 048
     Dates: start: 20070123

REACTIONS (11)
  - DRUG RASH WITH EOSINOPHILIA AND SYSTEMIC SYMPTOMS [None]
  - DRY EYE [None]
  - DYSPHAGIA [None]
  - DYSPNOEA [None]
  - ENCEPHALOPATHY [None]
  - HYPERSENSITIVITY [None]
  - OEDEMA PERIPHERAL [None]
  - RENAL FAILURE ACUTE [None]
  - SCAR [None]
  - STEVENS-JOHNSON SYNDROME [None]
  - VISION BLURRED [None]
